FAERS Safety Report 4673084-3 (Version None)
Quarter: 2005Q2

REPORT INFORMATION
  Report Type: 
  Country: None (occurrence: None)
  Receive Date: 20050524
  Receipt Date: 20050524
  Transmission Date: 20051028
  Serious: No
  Sender: FDA-Public Use
  Company Number: None

PATIENT
  Age: 73 Year
  Sex: Female

DRUGS (1)
  1. CEFOTAXIME [Suspect]
     Indication: CELLULITIS
     Dosage: 2 GM  Q8HR  INTRAVENOUS
     Route: 042
     Dates: start: 20050519, end: 20050519

REACTIONS (4)
  - BLISTER [None]
  - RASH ERYTHEMATOUS [None]
  - RASH PRURITIC [None]
  - SKIN EXFOLIATION [None]
